FAERS Safety Report 15329305 (Version 5)
Quarter: 2018Q4

REPORT INFORMATION
  Report Type: Report from Study
  Country: GB (occurrence: GB)
  Receive Date: 20180829
  Receipt Date: 20181129
  Transmission Date: 20190204
  Serious: Yes (Death, Hospitalization, Disabling, Other)
  Sender: FDA-Public Use
  Company Number: GB-TAKEDA-2018MPI010879

PATIENT
  Age: 79 Year
  Sex: Female

DRUGS (1)
  1. IXAZOMIB [Suspect]
     Active Substance: IXAZOMIB
     Indication: PLASMA CELL MYELOMA
     Dosage: UNK
     Route: 048
     Dates: start: 20180815

REACTIONS (17)
  - Upper limb fracture [Unknown]
  - Mallory-Weiss syndrome [Unknown]
  - Insomnia [Unknown]
  - Hypoaesthesia [Unknown]
  - Pain in extremity [Unknown]
  - Joint swelling [Unknown]
  - Malaise [Unknown]
  - Diarrhoea [Unknown]
  - Fall [Unknown]
  - Erythema [Unknown]
  - Constipation [Unknown]
  - Candida infection [Unknown]
  - Decreased appetite [Unknown]
  - Death [Fatal]
  - Fatigue [Unknown]
  - Vomiting [Unknown]
  - Peripheral swelling [Unknown]
